FAERS Safety Report 4661240-X (Version None)
Quarter: 2005Q2

REPORT INFORMATION
  Report Type: 
  Country: None (occurrence: None)
  Receive Date: 20050511
  Receipt Date: 20050506
  Transmission Date: 20051028
  Serious: Yes (Death)
  Sender: FDA-Public Use
  Company Number: 213333

PATIENT
  Age: 56 Year
  Sex: Male
  Weight: 90 kg

DRUGS (8)
  1. BEVACIZUMAB OR PLACEBO (BEVACIZUMAB OR PLACEBO) PWDR + SOLVENT, INFUSI [Suspect]
     Indication: COLORECTAL CANCER METASTATIC
     Dosage: 7.5 MG/KG, Q3W, INTRAVENOUS
     Route: 042
     Dates: start: 20040824
  2. CAPECITABINE (CAPECITABINE) [Suspect]
     Indication: COLORECTAL CANCER METASTATIC
     Dosage: 1000 MG/M2, BID, ORAL
     Route: 048
     Dates: start: 20040824
  3. OXALIPLATIN (OXALIPLATIN) [Suspect]
     Indication: COLORECTAL CANCER METASTATIC
     Dosage: 130 MG/M2, Q3W, INTRAVENOUS
     Route: 042
     Dates: start: 20040824
  4. WARFARIN SODIUM [Concomitant]
  5. MULTI-VITAMINS [Concomitant]
  6. GRANISETRON (GRANISETRON HYDROCHLORIDE) [Concomitant]
  7. DEXAMETHASONE [Concomitant]
  8. ZOPICLONE [Concomitant]

REACTIONS (1)
  - LOSS OF CONSCIOUSNESS [None]
